FAERS Safety Report 17996139 (Version 1)
Quarter: 2020Q3

REPORT INFORMATION
  Report Type: Spontaneous
  Country: US (occurrence: US)
  Receive Date: 20200708
  Receipt Date: 20200708
  Transmission Date: 20201103
  Serious: Yes (Hospitalization, Other)
  Sender: FDA-Public Use
  Company Number: US-HORIZON-DUE-0199-2020

PATIENT
  Age: 54 Year
  Sex: Female

DRUGS (1)
  1. DUEXIS [Suspect]
     Active Substance: FAMOTIDINE\IBUPROFEN
     Indication: ARTHRALGIA
     Dosage: TAKE UP TO 3 TIMES A DAY AS NEEDED
     Dates: start: 2017

REACTIONS (4)
  - Off label use [Unknown]
  - Expired product administered [Unknown]
  - Internal fixation of fracture [Unknown]
  - Fall [Unknown]
